FAERS Safety Report 5919424-6 (Version None)
Quarter: 2008Q4

REPORT INFORMATION
  Report Type: 
  Country: None (occurrence: None)
  Receive Date: 20081015
  Receipt Date: 20081008
  Transmission Date: 20090506
  Serious: Yes (Other)
  Sender: FDA-Public Use
  Company Number: PHBS2008FR05936

PATIENT
  Age: 56 Year
  Sex: Female

DRUGS (4)
  1. CYCLOSPORINE [Suspect]
     Indication: RENAL TRANSPLANT
  2. BASILIXIMAB [Suspect]
     Indication: RENAL TRANSPLANT
  3. MYCOPHENOLATE MOFETIL [Suspect]
     Indication: RENAL TRANSPLANT
  4. STEROIDS NOS [Concomitant]

REACTIONS (6)
  - CELLULITIS [None]
  - CORONARY ARTERY DISEASE [None]
  - GLOMERULONEPHRITIS [None]
  - HAEMATURIA [None]
  - PROTEINURIA [None]
  - TOOTH EXTRACTION [None]
